FAERS Safety Report 16403908 (Version 1)
Quarter: 2019Q2

REPORT INFORMATION
  Report Type: Spontaneous
  Country: CN (occurrence: CN)
  Receive Date: 20190607
  Receipt Date: 20190607
  Transmission Date: 20190711
  Serious: Yes (Other)
  Sender: FDA-Public Use
  Company Number: CN-ROCHE-2324342

PATIENT
  Age: 48 Year
  Sex: Female

DRUGS (22)
  1. DOCETAXEL. [Concomitant]
     Active Substance: DOCETAXEL
     Indication: INVASIVE DUCTAL BREAST CARCINOMA
  2. PYROTINIB [Concomitant]
     Active Substance: PYROTINIB
     Indication: METASTASES TO BONE
  3. DOCETAXEL. [Concomitant]
     Active Substance: DOCETAXEL
     Indication: METASTASES TO LUNG
  4. XELODA [Suspect]
     Active Substance: CAPECITABINE
     Indication: METASTASES TO BONE
  5. APATINIB [Concomitant]
     Active Substance: APATINIB
     Indication: INVASIVE DUCTAL BREAST CARCINOMA
  6. PYROTINIB [Concomitant]
     Active Substance: PYROTINIB
     Indication: METASTASES TO LUNG
  7. PYROTINIB [Concomitant]
     Active Substance: PYROTINIB
     Indication: METASTASES TO LYMPH NODES
  8. GOSERELIN [Concomitant]
     Active Substance: GOSERELIN
  9. ZOLEDRONIC ACID [Concomitant]
     Active Substance: ZOLEDRONIC ACID
     Indication: METASTASES TO BONE
  10. DOCETAXEL. [Concomitant]
     Active Substance: DOCETAXEL
     Indication: METASTASES TO BONE
  11. APATINIB [Concomitant]
     Active Substance: APATINIB
     Indication: METASTASES TO LIVER
  12. PYROTINIB [Concomitant]
     Active Substance: PYROTINIB
     Indication: METASTASES TO LIVER
  13. XELODA [Suspect]
     Active Substance: CAPECITABINE
     Indication: METASTASES TO LIVER
  14. XELODA [Suspect]
     Active Substance: CAPECITABINE
     Indication: METASTASES TO LYMPH NODES
  15. APATINIB [Concomitant]
     Active Substance: APATINIB
     Indication: METASTASES TO LUNG
  16. APATINIB [Concomitant]
     Active Substance: APATINIB
     Indication: METASTASES TO BONE
  17. XELODA [Suspect]
     Active Substance: CAPECITABINE
     Indication: METASTASES TO LUNG
  18. DOCETAXEL. [Concomitant]
     Active Substance: DOCETAXEL
     Indication: METASTASES TO LIVER
  19. APATINIB [Concomitant]
     Active Substance: APATINIB
     Indication: METASTASES TO LYMPH NODES
  20. PYROTINIB [Concomitant]
     Active Substance: PYROTINIB
     Indication: INVASIVE DUCTAL BREAST CARCINOMA
  21. XELODA [Suspect]
     Active Substance: CAPECITABINE
     Indication: INVASIVE DUCTAL BREAST CARCINOMA
     Route: 048
     Dates: start: 20170414
  22. DOCETAXEL. [Concomitant]
     Active Substance: DOCETAXEL
     Indication: METASTASES TO LYMPH NODES

REACTIONS (14)
  - Arthritis [Unknown]
  - Human epidermal growth factor receptor increased [Recovering/Resolving]
  - Cardiomyopathy [Unknown]
  - Cholecystitis [Unknown]
  - Liver injury [Unknown]
  - White blood cell count decreased [Unknown]
  - Neutrophil count decreased [Unknown]
  - Peripheral swelling [Unknown]
  - Tricuspid valve incompetence [Unknown]
  - Tonsillar inflammation [Unknown]
  - Inflammation [Unknown]
  - Osteoarthritis [Unknown]
  - Pneumonitis [Unknown]
  - Thyroiditis [Unknown]
